FAERS Safety Report 5069848-7 (Version None)
Quarter: 2006Q3

REPORT INFORMATION
  Report Type: 
  Country: None (occurrence: None)
  Receive Date: 20060802
  Receipt Date: 20060802
  Transmission Date: 20061208
  Serious: Yes (Other)
  Sender: FDA-Public Use
  Company Number: None

PATIENT
  Sex: Male
  Weight: 118.2 kg

DRUGS (4)
  1. SOLU-MEDROL [Suspect]
     Indication: CONDITION AGGRAVATED
     Dosage: 1000 MG QD IV
     Route: 042
     Dates: start: 20060714, end: 20060716
  2. SOLU-MEDROL [Suspect]
     Indication: MULTIPLE SCLEROSIS
     Dosage: 1000 MG QD IV
     Route: 042
     Dates: start: 20060714, end: 20060716
  3. COPAXONE [Concomitant]
  4. HEPARIN LOCK-FLUSH [Concomitant]

REACTIONS (6)
  - CATHETER SITE PAIN [None]
  - DYSPNOEA [None]
  - HEADACHE [None]
  - LOCAL SWELLING [None]
  - NAUSEA [None]
  - OBSTRUCTIVE AIRWAYS DISORDER [None]
